FAERS Safety Report 17432822 (Version 1)
Quarter: 2020Q1

REPORT INFORMATION
  Report Type: Report from Study
  Country: GB (occurrence: GB)
  Receive Date: 20200219
  Receipt Date: 20200219
  Transmission Date: 20200409
  Serious: Yes (Hospitalization, Other)
  Sender: FDA-Public Use
  Company Number: GB-AMGEN-GBRSL2020017199

PATIENT
  Sex: Female

DRUGS (1)
  1. ARANESP [Suspect]
     Active Substance: DARBEPOETIN ALFA
     Indication: PRODUCT USED FOR UNKNOWN INDICATION
     Dosage: UNK
     Route: 065

REACTIONS (7)
  - Hip fracture [Unknown]
  - Infection [Unknown]
  - General physical health deterioration [Unknown]
  - Renal impairment [Unknown]
  - Lower respiratory tract infection [Unknown]
  - Cellulitis [Unknown]
  - Fall [Unknown]
